FAERS Safety Report 10652711 (Version 1)
Quarter: 2014Q4

REPORT INFORMATION
  Report Type: Spontaneous
  Country: CH (occurrence: CH)
  Receive Date: 20141215
  Receipt Date: 20141215
  Transmission Date: 20150529
  Serious: Yes (Life-Threatening, Hospitalization)
  Sender: FDA-Public Use
  Company Number: CH-ASTRAZENECA-2014SE95105

PATIENT
  Age: 14 Year
  Sex: Female
  Weight: 60 kg

DRUGS (3)
  1. NOZINAN [Concomitant]
     Active Substance: LEVOMEPROMAZINE
     Indication: AGITATION
     Dosage: 8 MG AT 20:00, 15 MG AT 20:00 AND 2 X 15 MG IN RESERVE AT NIGHT
     Route: 048
     Dates: start: 2014
  2. SEROQUEL XR [Suspect]
     Active Substance: QUETIAPINE FUMARATE
     Indication: POST-TRAUMATIC STRESS DISORDER
     Route: 048
  3. SEROQUEL XR [Suspect]
     Active Substance: QUETIAPINE FUMARATE
     Indication: POST-TRAUMATIC STRESS DISORDER
     Dosage: MAXIMUM OF 60 TABLETS OF 400 MG (= MAX 24 G)
     Route: 048
     Dates: start: 20141201, end: 20141201

REACTIONS (10)
  - Altered state of consciousness [Recovered/Resolved]
  - Urinary retention [Recovered/Resolved]
  - Hallucination, auditory [Unknown]
  - Off label use [Unknown]
  - Suicide attempt [Recovered/Resolved]
  - Seizure [Recovered/Resolved]
  - Electrocardiogram QT prolonged [Recovered/Resolved]
  - Emotional distress [Unknown]
  - Toxicity to various agents [Recovering/Resolving]
  - Negativism [Unknown]

NARRATIVE: CASE EVENT DATE: 2014
